FAERS Safety Report 9576507 (Version 1)
Quarter: 2013Q4

REPORT INFORMATION
  Report Type: Spontaneous
  Country: US (occurrence: US)
  Receive Date: 20131001
  Receipt Date: 20131001
  Transmission Date: 20140711
  Serious: No
  Sender: FDA-Public Use
  Company Number: US-AMGEN-USASP2013003522

PATIENT
  Age: 61 Year
  Sex: Female
  Weight: 47.62 kg

DRUGS (11)
  1. ENBREL [Suspect]
     Indication: RHEUMATOID ARTHRITIS
     Dosage: 50 MG, QWK
     Route: 058
  2. CENTRUM SILVER                     /07431401/ [Concomitant]
     Dosage: UNK
  3. COMBIGAN [Concomitant]
     Dosage: 0.2 TO 0.5 %
  4. PREDNISONE [Concomitant]
     Dosage: 2.5 MG, UNK
  5. AZOPT [Concomitant]
     Dosage: 1 %, UNK
  6. FOLIC ACID [Concomitant]
     Dosage: 1 MG, UNK
  7. LEVOTHYROXIN [Concomitant]
     Dosage: 100 MUG, UNK
  8. METHOTREXATE [Concomitant]
     Dosage: 50 MG/2ML, UNK
  9. PRED FORTE [Concomitant]
     Dosage: 1 %, UNK
  10. CRANBERRY                          /01512301/ [Concomitant]
     Dosage: UNK
  11. PROBIOTIC                          /06395501/ [Concomitant]
     Dosage: UNK

REACTIONS (2)
  - Respiratory tract congestion [Unknown]
  - Nasopharyngitis [Unknown]
